FAERS Safety Report 17897934 (Version 7)
Quarter: 2020Q4

REPORT INFORMATION
  Report Type: Report from Study
  Country: CO (occurrence: CO)
  Receive Date: 20200616
  Receipt Date: 20201230
  Transmission Date: 20210113
  Serious: Yes (Life-Threatening, Hospitalization, Other)
  Sender: FDA-Public Use
  Company Number: CO-BRISTOL-MYERS SQUIBB COMPANY-BMS-2019-117380

PATIENT
  Age: 67 Year
  Sex: Male

DRUGS (2)
  1. NIVOLUMAB [Suspect]
     Active Substance: NIVOLUMAB
     Indication: HEAD AND NECK CANCER
     Dosage: 230 MILLIGRAM, Q2WK
     Route: 042
     Dates: start: 20191122, end: 20200612
  2. SULTAMICILLIN [Concomitant]
     Active Substance: SULTAMICILLIN
     Indication: PRODUCT USED FOR UNKNOWN INDICATION
     Dosage: UNK, Q2WK
     Route: 065

REACTIONS (21)
  - Oxygen saturation decreased [Recovering/Resolving]
  - Respiratory tract infection [Recovering/Resolving]
  - Muscular weakness [Unknown]
  - Blood creatinine increased [Recovering/Resolving]
  - Asthenia [Recovering/Resolving]
  - Fatigue [Recovering/Resolving]
  - Diarrhoea [Recovering/Resolving]
  - Parosmia [Recovering/Resolving]
  - Depression [Recovering/Resolving]
  - Hypotension [Recovering/Resolving]
  - Post procedural haemorrhage [Not Recovered/Not Resolved]
  - Thyroid disorder [Recovering/Resolving]
  - Movement disorder [Recovering/Resolving]
  - Productive cough [Recovering/Resolving]
  - Vomiting [Recovering/Resolving]
  - Dizziness [Recovering/Resolving]
  - Polydipsia [Recovering/Resolving]
  - Pain in jaw [Recovered/Resolved]
  - Urine output decreased [Unknown]
  - General physical health deterioration [Recovering/Resolving]
  - Dyspnoea [Recovering/Resolving]

NARRATIVE: CASE EVENT DATE: 20191128
